FAERS Safety Report 24842276 (Version 1)
Quarter: 2025Q1

REPORT INFORMATION
  Report Type: Spontaneous
  Country: US (occurrence: US)
  Receive Date: 20250115
  Receipt Date: 20250115
  Transmission Date: 20250409
  Serious: No
  Sender: SANOFI AVENTIS
  Company Number: US-SA-2025SA009728

PATIENT
  Age: 1 Year
  Sex: Male

DRUGS (1)
  1. DUPIXENT [Suspect]
     Active Substance: DUPILUMAB
     Indication: Dermatitis atopic
     Dosage: 200 MG, Q4W
     Route: 058
     Dates: start: 202411

REACTIONS (9)
  - Crying [Unknown]
  - Ear infection [Unknown]
  - Immune system disorder [Recovering/Resolving]
  - Influenza [Recovering/Resolving]
  - Lung disorder [Recovering/Resolving]
  - Pyrexia [Recovering/Resolving]
  - Respiratory disorder [Unknown]
  - Rhinorrhoea [Recovering/Resolving]
  - Eczema [Unknown]

NARRATIVE: CASE EVENT DATE: 20241101
